FAERS Safety Report 20649640 (Version 1)
Quarter: 2022Q1

REPORT INFORMATION
  Report Type: Spontaneous
  Country: US (occurrence: US)
  Receive Date: 20220329
  Receipt Date: 20220329
  Transmission Date: 20220423
  Serious: No
  Sender: FDA-Public Use
  Company Number: US-HISAMITSU-2021-US-021981

PATIENT
  Age: 61 Year
  Sex: Female
  Weight: 48.53 kg

DRUGS (6)
  1. SALONPAS LIDOCAINE PAIN RELIEVING [Suspect]
     Active Substance: LIDOCAINE
     Indication: Analgesic therapy
     Dosage: APPLIED TO HIP AND TAILBONE IN AM
     Route: 061
     Dates: start: 202110, end: 20211004
  2. SALONPAS PAIN RELIEF [Suspect]
     Active Substance: MENTHOL\METHYL SALICYLATE
     Indication: Analgesic therapy
     Dosage: 1-2 PATCHES IN PM
     Route: 061
     Dates: start: 202109
  3. ATENOLOL [Concomitant]
     Active Substance: ATENOLOL
  4. AMLODIPINE [Concomitant]
     Active Substance: AMLODIPINE BESYLATE
  5. KEPPRA [Concomitant]
     Active Substance: LEVETIRACETAM
  6. Several unspecified cancer medications [Concomitant]

REACTIONS (1)
  - Intentional product misuse [Unknown]

NARRATIVE: CASE EVENT DATE: 20210901
